FAERS Safety Report 8805728 (Version 2)
Quarter: 2013Q3

REPORT INFORMATION
  Report Type: Spontaneous
  Country: US (occurrence: US)
  Receive Date: 20120924
  Receipt Date: 20130820
  Transmission Date: 20140515
  Serious: Yes (Hospitalization, Disabling, Other)
  Sender: FDA-Public Use
  Company Number: US-009507513-1209USA007648

PATIENT
  Sex: Female

DRUGS (4)
  1. MK-0000 (111) [Suspect]
     Dosage: UNK
     Dates: start: 2005, end: 2010
  2. ACTONEL [Suspect]
     Indication: OSTEOPOROSIS
  3. RECLAST [Suspect]
  4. EPIPEN [Concomitant]
     Indication: ALLERGY TO ARTHROPOD STING
     Dosage: 0.3 MG, PRN

REACTIONS (60)
  - Femur fracture [Unknown]
  - Fall [Unknown]
  - Intramedullary rod insertion [Unknown]
  - Open reduction of fracture [Unknown]
  - Humerus fracture [Unknown]
  - Radius fracture [Unknown]
  - Cerebrovascular accident [Unknown]
  - Carpal tunnel decompression [Unknown]
  - Fall [Unknown]
  - Carpal tunnel syndrome [Unknown]
  - Clavicle fracture [Unknown]
  - Compression fracture [Unknown]
  - Fall [Unknown]
  - Vertebroplasty [Unknown]
  - Vertebroplasty [Unknown]
  - Vertebroplasty [Unknown]
  - Compression fracture [Unknown]
  - Fall [Unknown]
  - Spinal pain [Unknown]
  - Osteopenia [Unknown]
  - Fracture nonunion [Unknown]
  - Hypertension [Unknown]
  - Osteoarthritis [Unknown]
  - Rotator cuff syndrome [Unknown]
  - Fibromyalgia [Unknown]
  - Osteoarthritis [Unknown]
  - Bursitis [Unknown]
  - Osteoarthritis [Unknown]
  - Osteoarthritis [Unknown]
  - Rectocele [Unknown]
  - Biopsy breast [Unknown]
  - Gastrointestinal ulcer [Unknown]
  - Fatigue [Unknown]
  - Contusion [Unknown]
  - Chest pain [Unknown]
  - Hypoaesthesia [Unknown]
  - Paraesthesia [Unknown]
  - Balance disorder [Unknown]
  - Intervertebral disc degeneration [Unknown]
  - Cardiac disorder [Unknown]
  - Cardiac failure congestive [Unknown]
  - Bronchitis [Unknown]
  - Rheumatoid arthritis [Unknown]
  - Osteoarthritis [Unknown]
  - Synovial cyst [Unknown]
  - Rotator cuff syndrome [Unknown]
  - Blood cholesterol increased [Unknown]
  - Paranasal sinus hypersecretion [Unknown]
  - Cough [Unknown]
  - Sinus congestion [Unknown]
  - Pulmonary hypertension [Unknown]
  - Mitral valve incompetence [Unknown]
  - Arthralgia [Unknown]
  - Arthralgia [Unknown]
  - Oedema peripheral [Unknown]
  - Gastrooesophageal reflux disease [Unknown]
  - Arthralgia [Unknown]
  - Back pain [Unknown]
  - Oedema peripheral [Unknown]
  - Gastrooesophageal reflux disease [Recovering/Resolving]
